FAERS Safety Report 23280232 (Version 4)
Quarter: 2023Q4

REPORT INFORMATION
  Report Type: Report from Study
  Country: US (occurrence: US)
  Receive Date: 20231210
  Receipt Date: 20231228
  Transmission Date: 20240109
  Serious: Yes (Death, Hospitalization)
  Sender: FDA-Public Use
  Company Number: US-ABBVIE-5531282

PATIENT
  Age: 86 Year
  Sex: Female
  Weight: 42.637 kg

DRUGS (1)
  1. HUMIRA [Suspect]
     Active Substance: ADALIMUMAB
     Indication: Rheumatoid arthritis
     Dosage: CITRATE FREE?FORM STRENGTH: 40  MILLIGRAM
     Route: 058
     Dates: start: 20221024, end: 202310

REACTIONS (5)
  - Illness [Fatal]
  - Herpes zoster [Unknown]
  - Transient ischaemic attack [Fatal]
  - Pain [Unknown]
  - Asthenia [Fatal]

NARRATIVE: CASE EVENT DATE: 20231001
